FAERS Safety Report 4310636-4 (Version None)
Quarter: 2004Q1

REPORT INFORMATION
  Report Type: 
  Country: None (occurrence: None)
  Receive Date: 20040301
  Receipt Date: 20031027
  Transmission Date: 20041129
  Serious: No
  Sender: FDA-Public Use
  Company Number: WAES 0310USA02979

PATIENT
  Sex: Female
  Weight: 57.1532 kg

DRUGS (7)
  1. ZETIA [Suspect]
     Indication: HYPERCHOLESTEROLAEMIA
     Dosage: 10 MG/DAILY/PO
     Route: 048
     Dates: start: 20030701
  2. ACIPHEX [Concomitant]
  3. ALPHAGAN [Concomitant]
  4. CELEBREX [Concomitant]
  5. CHOLESTATIN [Concomitant]
  6. SYNTHROID [Concomitant]
  7. TIMOPTIC [Concomitant]

REACTIONS (7)
  - BALANCE DISORDER [None]
  - CONFUSIONAL STATE [None]
  - DISORIENTATION [None]
  - RESTLESSNESS [None]
  - SINUSITIS [None]
  - SNEEZING [None]
  - VERTIGO [None]
